FAERS Safety Report 6761679-2 (Version None)
Quarter: 2010Q2

REPORT INFORMATION
  Report Type: 
  Country: None (occurrence: None)
  Receive Date: 20100609
  Receipt Date: 20100601
  Transmission Date: 20101027
  Serious: No
  Sender: FDA-Public Use
  Company Number: 2005BI021833

PATIENT
  Sex: Female

DRUGS (2)
  1. TYSABRI [Suspect]
     Indication: MULTIPLE SCLEROSIS
     Route: 042
     Dates: start: 20050217, end: 20050217
  2. STOOL SOFTENER [Concomitant]

REACTIONS (10)
  - EYE DISORDER [None]
  - FATIGUE [None]
  - INFLUENZA [None]
  - INFLUENZA LIKE ILLNESS [None]
  - MYALGIA [None]
  - NASOPHARYNGITIS [None]
  - PNEUMONIA [None]
  - RAYNAUD'S PHENOMENON [None]
  - URTICARIA [None]
  - VISUAL IMPAIRMENT [None]
